FAERS Safety Report 5516091-0 (Version None)
Quarter: 2007Q4

REPORT INFORMATION
  Report Type: 
  Country: None (occurrence: None)
  Receive Date: 20071114
  Receipt Date: 20061206
  Transmission Date: 20080405
  Serious: No
  Sender: FDA-Public Use
  Company Number: A0630387A

PATIENT
  Age: 79 Year
  Sex: Female

DRUGS (2)
  1. COMMIT [Suspect]
     Dates: start: 20061106, end: 20061127
  2. ATIVAN [Concomitant]

REACTIONS (7)
  - CHOKING SENSATION [None]
  - DRY MOUTH [None]
  - DRY THROAT [None]
  - NAUSEA [None]
  - RETCHING [None]
  - STOMACH DISCOMFORT [None]
  - VOMITING [None]
